FAERS Safety Report 21736279 (Version 1)
Quarter: 2022Q4

REPORT INFORMATION
  Report Type: Report from Study
  Country: US (occurrence: US)
  Receive Date: 20221215
  Receipt Date: 20221215
  Transmission Date: 20230112
  Serious: No
  Sender: FDA-Public Use
  Company Number: US-ABBVIE-22K-163-4490410-00

PATIENT
  Sex: Male

DRUGS (3)
  1. SKYRIZI [Suspect]
     Active Substance: RISANKIZUMAB-RZAA
     Indication: Psoriasis
     Dosage: 150 MG/ML: RX 2: INJECT 1 PEN  STARTING AT WEEK 4 ?FORMULATION: SOLUTION AUTO-INJECTOR
     Route: 058
     Dates: start: 20220416, end: 2022
  2. SKYRIZI [Suspect]
     Active Substance: RISANKIZUMAB-RZAA
     Dosage: 150 MG/ML RX2 INJECT EVERY 12 WEEKS FORMULATION SOLUTION AUTO INJECTOR
     Route: 058
     Dates: start: 2022
  3. Pfizer/BioNTech [Concomitant]
     Indication: COVID-19 immunisation
     Route: 030

REACTIONS (1)
  - Fatigue [Recovered/Resolved]
